FAERS Safety Report 25714635 (Version 1)
Quarter: 2025Q3

REPORT INFORMATION
  Report Type: Spontaneous
  Country: KR (occurrence: KR)
  Receive Date: 20250822
  Receipt Date: 20250822
  Transmission Date: 20251020
  Serious: Yes (Disabling)
  Sender: STRIDES
  Company Number: KR-STRIDES ARCOLAB LIMITED-2025SP010746

PATIENT

DRUGS (1)
  1. TOPIRAMATE [Suspect]
     Active Substance: TOPIRAMATE
     Indication: Migraine prophylaxis
     Route: 065

REACTIONS (1)
  - Raynaud^s phenomenon [Unknown]
